FAERS Safety Report 5093789-2 (Version None)
Quarter: 2006Q3

REPORT INFORMATION
  Report Type: 
  Country: None (occurrence: None)
  Receive Date: 20060831
  Receipt Date: 20060821
  Transmission Date: 20061208
  Serious: Yes (Other)
  Sender: FDA-Public Use
  Company Number: US-JNJFOC-20060804996

PATIENT
  Sex: Male
  Weight: 158.76 kg

DRUGS (13)
  1. DURAGESIC-100 [Suspect]
     Indication: HEADACHE
     Route: 062
  2. OXYCONTIN [Concomitant]
     Indication: PAIN
     Route: 048
  3. LASIX [Concomitant]
     Indication: DIURETIC THERAPY
     Route: 048
  4. ZAROXOLYN [Concomitant]
     Indication: DIURETIC THERAPY
     Route: 048
  5. MORPHINE [Concomitant]
     Indication: PAIN
     Route: 048
  6. DEMEROL [Concomitant]
     Indication: PAIN
     Route: 048
  7. DIAZEPAM [Concomitant]
     Indication: VISUAL DISTURBANCE
     Route: 048
  8. KEPPRA [Concomitant]
     Indication: CONVULSION
     Route: 048
  9. FOLBIC [Concomitant]
     Route: 065
  10. K-DUR 10 [Concomitant]
     Route: 048
  11. THIAMINE HCL [Concomitant]
     Route: 065
  12. CARPRISDOL [Concomitant]
     Indication: INSOMNIA
     Route: 048
  13. NORCO [Concomitant]
     Indication: PAIN
     Route: 065

REACTIONS (1)
  - BRAIN NEOPLASM MALIGNANT [None]
